FAERS Safety Report 14715382 (Version 4)
Quarter: 2021Q1

REPORT INFORMATION
  Report Type: Report from Study
  Country: DE (occurrence: DE)
  Receive Date: 20180404
  Receipt Date: 20210224
  Transmission Date: 20210419
  Serious: Yes (Congenital Anomaly, Other)
  Sender: FDA-Public Use
  Company Number: DE-GLAXOSMITHKLINE-DE2018056141

PATIENT
  Sex: Male
  Weight: 2.9 kg

DRUGS (14)
  1. SULFASALAZINE. [Suspect]
     Active Substance: SULFASALAZINE
     Indication: FOETAL EXPOSURE DURING PREGNANCY
  2. DICLOFENAC SODIUM. [Suspect]
     Active Substance: DICLOFENAC SODIUM
     Indication: RHEUMATOID ARTHRITIS
     Dosage: 100 MG (100 MG, PRN GESTSTIONAL WEEK OF EXPOSURE 0?19 + 4)
     Route: 064
  3. DICLOFENAC SODIUM. [Suspect]
     Active Substance: DICLOFENAC SODIUM
     Indication: PAIN
  4. SULFASALAZINE. [Suspect]
     Active Substance: SULFASALAZINE
     Indication: RHEUMATOID ARTHRITIS
     Dosage: UNK (GESTATIONAL WEEK OF EXPOSURE? 0?17)
     Route: 064
  5. PARACETAMOL [Suspect]
     Active Substance: ACETAMINOPHEN
     Indication: RHEUMATOID ARTHRITIS
  6. HYDROXYCHLOROQUINE [Suspect]
     Active Substance: HYDROXYCHLOROQUINE
     Indication: RHEUMATOID ARTHRITIS
  7. DICLOFENAC [Suspect]
     Active Substance: DICLOFENAC
     Indication: RHEUMATOID ARTHRITIS
     Dosage: 100 MG, AS NEEDED, GESTSTIONAL WEEK OF EXPOSURE 0?19 + 4
     Route: 064
  8. DICLOFENAC SODIUM. [Suspect]
     Active Substance: DICLOFENAC SODIUM
     Indication: FOETAL EXPOSURE DURING PREGNANCY
  9. PARACETAMOL [Suspect]
     Active Substance: ACETAMINOPHEN
     Indication: FOETAL EXPOSURE DURING PREGNANCY
     Dosage: UNK (GESTATIONAL WEEK OF EXPOSURE? 17?21)
     Route: 064
  10. IBUPROFEN. [Suspect]
     Active Substance: IBUPROFEN
     Indication: PRODUCT USED FOR UNKNOWN INDICATION
     Dosage: UNK, FROM 0 TO 27 GESTATIONAL WEEK
     Route: 064
  11. LEVOTHYROXIN [Suspect]
     Active Substance: LEVOTHYROXINE
     Indication: PRODUCT USED FOR UNKNOWN INDICATION
     Dosage: UNK, FROM 0 TO 27 GESTATIONAL WEEK
     Route: 064
  12. LYNESTRENOL [Suspect]
     Active Substance: LYNESTRENOL
     Indication: PRODUCT USED FOR UNKNOWN INDICATION
     Dosage: UNKFROM 0 TO 4 GESTATIONAL WEEK
     Route: 064
  13. HYDROXYCHLOROQUINE [Suspect]
     Active Substance: HYDROXYCHLOROQUINE
     Indication: FOETAL EXPOSURE DURING PREGNANCY
     Dosage: UNK (GESTATIONAL WEEK OF EXPOSURE? 0?13)
     Route: 064
  14. OMEPRAZOLE. [Suspect]
     Active Substance: OMEPRAZOLE
     Indication: PRODUCT USED FOR UNKNOWN INDICATION
     Dosage: UNK, FROM 0 TO 4 GESTATIONAL WEEK
     Route: 064

REACTIONS (13)
  - Atrial septal defect [Unknown]
  - Medium-chain acyl-coenzyme A dehydrogenase deficiency [Unknown]
  - Trisomy 8 [Unknown]
  - Pyloric stenosis [Unknown]
  - Cerebral atrophy congenital [Unknown]
  - Foetal exposure during pregnancy [Unknown]
  - Pupils unequal [Unknown]
  - Maternal exposure during pregnancy [Unknown]
  - Macrocephaly [Unknown]
  - Splenomegaly [Unknown]
  - Microcephaly [Unknown]
  - Cryopyrin associated periodic syndrome [Unknown]
  - Fragile X syndrome [Unknown]
